FAERS Safety Report 13803901 (Version 1)
Quarter: 2017Q3

REPORT INFORMATION
  Report Type: Spontaneous
  Country: US (occurrence: US)
  Receive Date: 20170728
  Receipt Date: 20170728
  Transmission Date: 20171127
  Serious: No
  Sender: FDA-Public Use
  Company Number: US-ABBVIE-16P-163-1723361-00

PATIENT
  Sex: Female
  Weight: 113.5 kg

DRUGS (6)
  1. TIROSINT [Suspect]
     Active Substance: LEVOTHYROXINE SODIUM
     Route: 048
  2. SYNTHROID [Suspect]
     Active Substance: LEVOTHYROXINE SODIUM
     Indication: PRODUCT USED FOR UNKNOWN INDICATION
     Route: 065
  3. TIROSINT [Suspect]
     Active Substance: LEVOTHYROXINE SODIUM
     Dosage: ALTERNATING 75 MCG ONE DAY, 50 MCG ONE DAY
     Route: 048
     Dates: start: 201603, end: 201606
  4. LEVOTHYROXINE. [Suspect]
     Active Substance: LEVOTHYROXINE
     Indication: PRODUCT USED FOR UNKNOWN INDICATION
     Route: 065
  5. TIROSINT [Suspect]
     Active Substance: LEVOTHYROXINE SODIUM
     Indication: HYPOTHYROIDISM
     Route: 048
  6. TIROSINT [Suspect]
     Active Substance: LEVOTHYROXINE SODIUM
     Route: 048
     Dates: start: 201606, end: 20160711

REACTIONS (7)
  - Insomnia [Recovering/Resolving]
  - Blood thyroid stimulating hormone decreased [Unknown]
  - Peripheral swelling [Recovering/Resolving]
  - Injury [Unknown]
  - Weight increased [Unknown]
  - Irritability [Recovering/Resolving]
  - Diarrhoea [Unknown]
